FAERS Safety Report 25665111 (Version 1)
Quarter: 2025Q3

REPORT INFORMATION
  Report Type: Spontaneous
  Country: US (occurrence: None)
  Receive Date: 20250809
  Receipt Date: 20250809
  Transmission Date: 20251020
  Serious: Yes (Other)
  Sender: FDA-CTU
  Company Number: None

PATIENT
  Age: 73 Week
  Sex: Female
  Weight: 54.9 kg

DRUGS (14)
  1. REPATHA [Suspect]
     Active Substance: EVOLOCUMAB
     Indication: Interstitial lung disease
     Route: 030
     Dates: start: 20250707, end: 20250805
  2. Valsartan 80 mg, [Concomitant]
  3. irbersartan 75 mg, [Concomitant]
  4. metropolol 125 mg, [Concomitant]
  5. esomeprazole 40mg, [Concomitant]
  6. famitidine 10 mg, [Concomitant]
  7. loratadine 10 mg, [Concomitant]
  8. hydroxyzine 25mg, [Concomitant]
  9. gabapentin 100 mg, [Concomitant]
  10. montelucast 10 mg, [Concomitant]
  11. duloxetine 60 mg, [Concomitant]
  12. lorazepan 1 mg, [Concomitant]
  13. zolpidem 1 mg, [Concomitant]
  14. ANORO ELLIPTA [Concomitant]
     Active Substance: UMECLIDINIUM BROMIDE\VILANTEROL TRIFENATATE

REACTIONS (7)
  - Injection site pain [None]
  - Malaise [None]
  - Oropharyngeal pain [None]
  - Rhinorrhoea [None]
  - Pain [None]
  - Fatigue [None]
  - Back pain [None]

NARRATIVE: CASE EVENT DATE: 20250805
